FAERS Safety Report 10697270 (Version 1)
Quarter: 2015Q1

REPORT INFORMATION
  Report Type: Spontaneous
  Country: US (occurrence: None)
  Receive Date: 20150106
  Receipt Date: 20150106
  Transmission Date: 20150721
  Serious: Yes (Hospitalization)
  Sender: FDA-Public Use
  Company Number: US-H14001-14-01887

PATIENT
  Age: 53 Year
  Sex: Male

DRUGS (3)
  1. VANCOMYCIN [Concomitant]
     Active Substance: VANCOMYCIN
  2. CEFEPIME [Concomitant]
     Active Substance: CEFEPIME\CEFEPIME HYDROCHLORIDE
  3. TOPIRAMATE. [Suspect]
     Active Substance: TOPIRAMATE
     Indication: SEIZURE

REACTIONS (10)
  - Haematocrit abnormal [None]
  - Metabolic acidosis [None]
  - White blood cell count decreased [None]
  - Respiratory failure [None]
  - Escherichia test positive [None]
  - Septic shock [None]
  - Hypokalaemia [None]
  - Lobar pneumonia [None]
  - Staphylococcus test positive [None]
  - Platelet count decreased [None]
